FAERS Safety Report 7970421-9 (Version None)
Quarter: 2011Q4

REPORT INFORMATION
  Report Type: 
  Country: None (occurrence: None)
  Receive Date: 20111122
  Receipt Date: 20110725
  Transmission Date: 20120403
  Serious: Yes (Other)
  Sender: FDA-Public Use
  Company Number: PHHY2011US48783

PATIENT
  Age: 49 Year
  Sex: Male

DRUGS (6)
  1. GILENYA [Suspect]
     Indication: MULTIPLE SCLEROSIS
     Dosage: 0.5 MG, QD, ORAL
     Route: 048
     Dates: start: 20110309
  2. LANSOPRAZOLE [Concomitant]
  3. METOPROLOL TARTRATE [Concomitant]
  4. FLONASE [Concomitant]
  5. METHYLPHENIDATE HCL [Concomitant]
  6. FEXOFENADINE HCL [Concomitant]

REACTIONS (1)
  - HYPERTENSION [None]
